FAERS Safety Report 13906174 (Version 1)
Quarter: 2017Q3

REPORT INFORMATION
  Report Type: Spontaneous
  Country: FR (occurrence: FR)
  Receive Date: 20170825
  Receipt Date: 20170825
  Transmission Date: 20171127
  Serious: Yes (Life-Threatening, Hospitalization)
  Sender: FDA-Public Use
  Company Number: FR-SA-2017SA152554

PATIENT
  Age: 71 Year
  Sex: Male

DRUGS (8)
  1. LOVENOX [Suspect]
     Active Substance: ENOXAPARIN SODIUM
     Indication: PROPHYLAXIS
     Route: 058
     Dates: start: 20170628, end: 20170711
  2. COLCHICINE. [Suspect]
     Active Substance: COLCHICINE
     Indication: PERICARDIAL EFFUSION
     Route: 048
     Dates: start: 20170628, end: 20170711
  3. DOLIPRANE [Concomitant]
     Active Substance: ACETAMINOPHEN
  4. ASPEGIC [Suspect]
     Active Substance: ASPIRIN DL-LYSINE
     Indication: PERICARDIAL EFFUSION
     Route: 048
     Dates: start: 20170628, end: 20170711
  5. FINASTERIDE. [Concomitant]
     Active Substance: FINASTERIDE
  6. TAMSULOSIN [Concomitant]
     Active Substance: TAMSULOSIN
  7. VOTRIENT [Suspect]
     Active Substance: PAZOPANIB HYDROCHLORIDE
     Indication: PAPILLARY RENAL CELL CARCINOMA
     Route: 048
     Dates: start: 20170704, end: 20170711
  8. SPECIAFOLDINE [Concomitant]
     Active Substance: FOLIC ACID

REACTIONS (2)
  - Status epilepticus [Recovering/Resolving]
  - Haemorrhagic stroke [Recovering/Resolving]

NARRATIVE: CASE EVENT DATE: 20170711
